FAERS Safety Report 4706482-X (Version None)
Quarter: 2005Q3

REPORT INFORMATION
  Report Type: 
  Country: None (occurrence: None)
  Receive Date: 20050705
  Receipt Date: 20050615
  Transmission Date: 20060218
  Serious: Yes (Disabling)
  Sender: FDA-Public Use
  Company Number: JP-GLAXOSMITHKLINE-B0384748A

PATIENT
  Age: 51 Year
  Sex: Female
  Weight: 52 kg

DRUGS (2)
  1. PAXIL [Suspect]
     Route: 048
  2. LIMAS [Suspect]
     Dosage: 600MG PER DAY
     Route: 048
     Dates: start: 20040601

REACTIONS (2)
  - EXTRAPYRAMIDAL DISORDER [None]
  - PARKINSONISM [None]
